FAERS Safety Report 5602251-7 (Version None)
Quarter: 2008Q1

REPORT INFORMATION
  Report Type: 
  Country: None (occurrence: None)
  Receive Date: 20080125
  Receipt Date: 20080115
  Transmission Date: 20080703
  Serious: Yes (Hospitalization, Other)
  Sender: FDA-Public Use
  Company Number: ES-JNJFOC-20080103508

PATIENT
  Age: 70 Year
  Sex: Male

DRUGS (2)
  1. LOPERAMIDE HCL [Suspect]
     Indication: DIARRHOEA
  2. ENALAPRIL MALEATE [Concomitant]
     Indication: HYPERTENSION

REACTIONS (5)
  - CONFUSIONAL STATE [None]
  - DISORIENTATION [None]
  - DRUG TOXICITY [None]
  - MIOSIS [None]
  - SOMNOLENCE [None]
